FAERS Safety Report 5094728-0 (Version None)
Quarter: 2006Q3

REPORT INFORMATION
  Report Type: 
  Country: None (occurrence: None)
  Receive Date: 20060731
  Receipt Date: 20060412
  Transmission Date: 20061208
  Serious: No
  Sender: FDA-Public Use
  Company Number: 2006PV011965

PATIENT
  Age: 62 Year
  Sex: Female
  Weight: 77.1115 kg

DRUGS (11)
  1. BYETTA [Suspect]
     Indication: GLUCOSE TOLERANCE IMPAIRED
     Dosage: 5 MCG; BID; SC
     Route: 058
     Dates: start: 20060329
  2. AVANDIA [Concomitant]
  3. SYNTHROID [Concomitant]
  4. GLUCOPHAGE [Concomitant]
  5. KLOR-CON [Concomitant]
  6. MOBIC [Concomitant]
  7. FUROSEMIDE [Concomitant]
  8. VITAMIN B-12 [Concomitant]
  9. VITAMIN D [Concomitant]
  10. CALCIUM GLUCONATE [Concomitant]
  11. MAXZIDE [Concomitant]

REACTIONS (10)
  - CONDITION AGGRAVATED [None]
  - DECREASED APPETITE [None]
  - FACE OEDEMA [None]
  - FLUID RETENTION [None]
  - HUNGER [None]
  - NAUSEA [None]
  - OEDEMA PERIPHERAL [None]
  - THERAPEUTIC RESPONSE UNEXPECTED [None]
  - WEIGHT DECREASED [None]
  - WEIGHT INCREASED [None]
